FAERS Safety Report 23042422 (Version 4)
Quarter: 2023Q4

REPORT INFORMATION
  Report Type: Spontaneous
  Country: US (occurrence: US)
  Receive Date: 20231008
  Receipt Date: 20231213
  Transmission Date: 20240109
  Serious: Yes (Other)
  Sender: FDA-Public Use
  Company Number: US-CELLTRION INC.-2023US019206

PATIENT

DRUGS (3)
  1. INFLECTRA [Suspect]
     Active Substance: INFLIXIMAB-DYYB
     Indication: Colitis ulcerative
     Dosage: UNK
     Dates: start: 20220601
  2. INFLECTRA [Suspect]
     Active Substance: INFLIXIMAB-DYYB
     Indication: Inflammatory bowel disease
     Dosage: 100 MG VIAL (INFUSIONS ARE EVERY 7 WEEKS)
  3. INFLECTRA [Suspect]
     Active Substance: INFLIXIMAB-DYYB
     Indication: Gastrointestinal inflammation
     Dosage: 100 ML/HR; MAX RATE 300 ML/HR (INFUSION EVERY 7 WEEKS)

REACTIONS (2)
  - Inflammatory bowel disease [Unknown]
  - Intentional product use issue [Unknown]
